FAERS Safety Report 9307435 (Version 1)
Quarter: 2013Q2

REPORT INFORMATION
  Report Type: Spontaneous
  Country: CN (occurrence: CN)
  Receive Date: 20130524
  Receipt Date: 20130524
  Transmission Date: 20140414
  Serious: Yes (Hospitalization)
  Sender: FDA-Public Use
  Company Number: CN-JNJFOC-20130509018

PATIENT
  Age: 41 Year
  Sex: Male

DRUGS (1)
  1. RISPERDAL [Suspect]
     Indication: SCHIZOPHRENIA
     Route: 048
     Dates: start: 20120612, end: 20120915

REACTIONS (4)
  - Abdominal distension [Recovering/Resolving]
  - Obesity [Recovering/Resolving]
  - Dyspepsia [Recovering/Resolving]
  - Appetite disorder [Recovering/Resolving]
